FAERS Safety Report 13780490 (Version 4)
Quarter: 2017Q3

REPORT INFORMATION
  Report Type: Spontaneous
  Country: US (occurrence: US)
  Receive Date: 20170724
  Receipt Date: 20170802
  Transmission Date: 20171127
  Serious: Yes (Death, Hospitalization, Other)
  Sender: FDA-Public Use
  Company Number: US-CIPLA LTD.-2016US23692

PATIENT

DRUGS (11)
  1. INSULIN [Suspect]
     Active Substance: INSULIN NOS
     Dosage: UNK, BOLUS OF 220 UNITS (2 UNITS/KG)
     Route: 042
  2. NOREPINEPHRINE. [Suspect]
     Active Substance: NOREPINEPHRINE
     Dosage: UNK, CONTINUOUS INFUSION
  3. NOREPINEPHRINE. [Suspect]
     Active Substance: NOREPINEPHRINE
     Dosage: UNK, MAXIMUM RATE OF 0.3 MCG/KG/MIN
  4. AMLODIPINE [Suspect]
     Active Substance: AMLODIPINE BESYLATE
     Dosage: 10 MG, INGESTED EIGHTY
     Route: 048
  5. DIVALPROEX DR [Suspect]
     Active Substance: DIVALPROEX SODIUM
     Indication: DEPRESSION
     Dosage: UNK
     Route: 065
  6. INSULIN [Suspect]
     Active Substance: INSULIN NOS
     Dosage: UNK, CONTINUOUS IV INFUSION AT A RATE OF 220 UNITS/H (2 UNITS/KG/H)
     Route: 042
  7. DOPAMINE [Suspect]
     Active Substance: DOPAMINE\DOPAMINE HYDROCHLORIDE
     Dosage: UNK
     Route: 065
  8. AMLODIPINE [Suspect]
     Active Substance: AMLODIPINE BESYLATE
     Indication: HYPERTENSION
     Dosage: UNK
     Route: 065
  9. RISPERIDONE. [Suspect]
     Active Substance: RISPERIDONE
     Indication: DEPRESSION
     Dosage: UNK
     Route: 065
  10. PHENYLEPHRINE [Suspect]
     Active Substance: PHENYLEPHRINE\PHENYLEPHRINE HYDROCHLORIDE
     Dosage: UNK, MAXIMUM RATE OF 5 MCG/KG/MIN WITHIN 20 MIN
     Route: 065
  11. TRAZODONE [Suspect]
     Active Substance: TRAZODONE HYDROCHLORIDE
     Indication: DEPRESSION
     Dosage: UNK
     Route: 065

REACTIONS (9)
  - Acute kidney injury [Unknown]
  - Cardiac arrest [Recovered/Resolved]
  - Drug ineffective [Unknown]
  - Suicide attempt [Unknown]
  - Death [Fatal]
  - Brain injury [Unknown]
  - Hypotension [Unknown]
  - Intentional overdose [Unknown]
  - Drug level increased [Recovering/Resolving]
